FAERS Safety Report 10901463 (Version 1)
Quarter: 2015Q1

REPORT INFORMATION
  Report Type: Spontaneous
  Country: US (occurrence: US)
  Receive Date: 20150310
  Receipt Date: 20150310
  Transmission Date: 20150721
  Serious: No
  Sender: FDA-Public Use
  Company Number: US-ENDO PHARMACEUTICALS INC.-OXYC20140013

PATIENT
  Age: 46 Year
  Sex: Female

DRUGS (1)
  1. OXYCODONE HCL 30MG [Suspect]
     Active Substance: OXYCODONE HYDROCHLORIDE
     Indication: PRODUCT USED FOR UNKNOWN INDICATION
     Route: 048
     Dates: start: 20140318

REACTIONS (4)
  - Headache [Unknown]
  - Flatulence [Unknown]
  - Crohn^s disease [Unknown]
  - Flank pain [Unknown]

NARRATIVE: CASE EVENT DATE: 201403
